FAERS Safety Report 8030185-X (Version None)
Quarter: 2012Q1

REPORT INFORMATION
  Report Type: 
  Country: None (occurrence: None)
  Receive Date: 20120109
  Receipt Date: 20120103
  Transmission Date: 20120608
  Serious: Yes (Death, Other)
  Sender: FDA-Public Use
  Company Number: US-BAYER-200940298NA

PATIENT
  Age: 67 Year
  Sex: Male
  Weight: 75 kg

DRUGS (17)
  1. COLCHICINE [Concomitant]
     Indication: GOUT
     Dosage: 0.6 MG, PRN
  2. MANNITOL [Concomitant]
     Dosage: PUMP PRIME
     Dates: start: 20070122, end: 20070122
  3. HYDROCHLOROTHIAZIDE [Concomitant]
     Dosage: 20/25 DAILY
  4. NEXIUM [Concomitant]
     Dosage: 40 MG, QD
  5. GLUCOVANCE [Concomitant]
     Indication: DIABETES MELLITUS
     Dosage: UNK
     Route: 048
     Dates: start: 20000101
  6. RED BLOOD CELLS [Concomitant]
  7. PROTAMINE SULFATE [Concomitant]
     Dosage: 250MG
     Dates: start: 20070122, end: 20070122
  8. TRASYLOL [Suspect]
     Indication: CORONARY ENDARTERECTOMY
     Dosage: LOADING DOSE: CONTINOUS FUSION 50ML/HR
  9. ASACOL [Concomitant]
     Dosage: 800 MG, TID
  10. TRASYLOL [Suspect]
     Indication: CORONARY ARTERY BYPASS
     Dosage: TEST DOSE 1ML, 100ML BYPASS PUMP PRIME
     Route: 042
     Dates: start: 20070122, end: 20070122
  11. LISINOPRIL [Concomitant]
  12. FENTANYL [Concomitant]
     Dosage: UNK
     Dates: start: 20070122, end: 20070122
  13. CARDIOPLEGIA [Concomitant]
     Dosage: 450ML
     Dates: start: 20070122, end: 20070122
  14. GLUCOPHAGE [Concomitant]
     Dosage: 500 MG, BID
  15. ALBUMIN (HUMAN) [Concomitant]
     Dosage: UNK
     Dates: start: 20070122, end: 20070122
  16. LIPITOR [Concomitant]
     Dosage: 20 MG, QD
  17. HEPARIN [Concomitant]
     Dosage: 15,000/10,000 UNITS
     Dates: start: 20070122, end: 20070122

REACTIONS (14)
  - RENAL FAILURE [None]
  - DEATH [None]
  - RENAL INJURY [None]
  - EMOTIONAL DISTRESS [None]
  - PSYCHOLOGICAL TRAUMA [None]
  - ANXIETY [None]
  - UNEVALUABLE EVENT [None]
  - INJURY [None]
  - RENAL IMPAIRMENT [None]
  - PAIN [None]
  - STRESS [None]
  - FEAR [None]
  - ANHEDONIA [None]
  - MULTI-ORGAN FAILURE [None]
